FAERS Safety Report 13439209 (Version 2)
Quarter: 2017Q2

REPORT INFORMATION
  Report Type: Spontaneous
  Country: JP (occurrence: JP)
  Receive Date: 20170412
  Receipt Date: 20170426
  Transmission Date: 20170830
  Serious: Yes (Death)
  Sender: FDA-Public Use
  Company Number: JP-ALLERGAN-1714330US

PATIENT
  Age: 3 Year
  Sex: Male

DRUGS (2)
  1. BOTOX [Suspect]
     Active Substance: ONABOTULINUMTOXINA
     Indication: PROPHYLAXIS
  2. BOTOX [Suspect]
     Active Substance: ONABOTULINUMTOXINA
     Indication: MUSCLE SPASMS
     Dosage: 50 UNITS, SINGLE
     Route: 030
     Dates: start: 20170316, end: 20170316

REACTIONS (6)
  - Off label use [Unknown]
  - Asphyxia [Fatal]
  - Septic shock [Fatal]
  - Vomiting [Fatal]
  - Pyrexia [Unknown]
  - Infection [Unknown]

NARRATIVE: CASE EVENT DATE: 20170324
